FAERS Safety Report 8417370 (Version 2)
Quarter: 2013Q1

REPORT INFORMATION
  Report Type: Spontaneous
  Country: US (occurrence: US)
  Receive Date: 20120220
  Receipt Date: 20130315
  Transmission Date: 20140127
  Serious: Yes (Other)
  Sender: FDA-Public Use
  Company Number: US-ASTRAZENECA-2012SE07928

PATIENT
  Age: 67 Year
  Sex: Female

DRUGS (1)
  1. NEXIUM [Suspect]
     Route: 048

REACTIONS (5)
  - Atypical pneumonia [Unknown]
  - Nasopharyngitis [Unknown]
  - Laryngitis [Unknown]
  - Adverse event [Unknown]
  - Drug dose omission [Unknown]
